FAERS Safety Report 13150600 (Version 3)
Quarter: 2017Q2

REPORT INFORMATION
  Report Type: Report from Study
  Country: US (occurrence: US)
  Receive Date: 20170125
  Receipt Date: 20170421
  Transmission Date: 20170830
  Serious: Yes (Hospitalization, Other)
  Sender: FDA-Public Use
  Company Number: US-JNJFOC-20161222759

PATIENT
  Age: 86 Year
  Sex: Female
  Weight: 62 kg

DRUGS (19)
  1. IMBRUVICA [Suspect]
     Active Substance: IBRUTINIB
     Indication: B-CELL LYMPHOMA
     Route: 048
     Dates: start: 2016, end: 20160401
  2. IMBRUVICA [Suspect]
     Active Substance: IBRUTINIB
     Indication: B-CELL LYMPHOMA
     Route: 048
     Dates: start: 201510, end: 2015
  3. IMBRUVICA [Suspect]
     Active Substance: IBRUTINIB
     Indication: WALDENSTROM^S MACROGLOBULINAEMIA
     Route: 048
     Dates: start: 201510, end: 2015
  4. IMBRUVICA [Suspect]
     Active Substance: IBRUTINIB
     Indication: B-CELL LYMPHOMA
     Route: 048
     Dates: start: 20160412
  5. IMBRUVICA [Suspect]
     Active Substance: IBRUTINIB
     Indication: B-CELL LYMPHOMA
     Route: 048
     Dates: start: 20160712
  6. IMBRUVICA [Suspect]
     Active Substance: IBRUTINIB
     Indication: WALDENSTROM^S MACROGLOBULINAEMIA
     Route: 048
     Dates: start: 20160712
  7. IMBRUVICA [Suspect]
     Active Substance: IBRUTINIB
     Indication: B-CELL LYMPHOMA
     Route: 048
     Dates: start: 201511, end: 2016
  8. IMBRUVICA [Suspect]
     Active Substance: IBRUTINIB
     Indication: WALDENSTROM^S MACROGLOBULINAEMIA
     Route: 048
     Dates: start: 201502, end: 201510
  9. IMBRUVICA [Suspect]
     Active Substance: IBRUTINIB
     Indication: WALDENSTROM^S MACROGLOBULINAEMIA
     Route: 048
     Dates: start: 20160412
  10. BENADRYL [Concomitant]
     Active Substance: DIPHENHYDRAMINE HYDROCHLORIDE
  11. RANITIDINE. [Concomitant]
     Active Substance: RANITIDINE
  12. IMBRUVICA [Suspect]
     Active Substance: IBRUTINIB
     Indication: B-CELL LYMPHOMA
     Route: 048
     Dates: start: 201502, end: 201510
  13. COREG [Concomitant]
     Active Substance: CARVEDILOL
  14. COZAAR [Concomitant]
     Active Substance: LOSARTAN POTASSIUM
  15. IMBRUVICA [Suspect]
     Active Substance: IBRUTINIB
     Indication: WALDENSTROM^S MACROGLOBULINAEMIA
     Route: 048
     Dates: start: 201511, end: 2016
  16. IMBRUVICA [Suspect]
     Active Substance: IBRUTINIB
     Indication: WALDENSTROM^S MACROGLOBULINAEMIA
     Route: 048
     Dates: start: 2016, end: 20160401
  17. PREDNISONE. [Concomitant]
     Active Substance: PREDNISONE
  18. CALCIUM [Concomitant]
     Active Substance: CALCIUM
  19. VITAMIN C [Concomitant]
     Active Substance: ASCORBIC ACID

REACTIONS (12)
  - Upper gastrointestinal haemorrhage [Recovered/Resolved]
  - Haematocrit decreased [Unknown]
  - Fall [Unknown]
  - Product use in unapproved indication [Not Recovered/Not Resolved]
  - Protein total decreased [Unknown]
  - Blood albumin decreased [Unknown]
  - Head injury [Recovered/Resolved]
  - Platelet count decreased [Unknown]
  - Off label use [Not Recovered/Not Resolved]
  - Product physical issue [Unknown]
  - Haemoglobin decreased [Unknown]
  - Ecchymosis [Recovered/Resolved]

NARRATIVE: CASE EVENT DATE: 201502
